FAERS Safety Report 8870117 (Version 1)
Quarter: 2012Q4

REPORT INFORMATION
  Report Type: 
  Country: IT (occurrence: IT)
  Receive Date: 20121028
  Receipt Date: 20121028
  Transmission Date: 20130627
  Serious: Yes (Other)
  Sender: FDA-Public Use
  Company Number: IT-MYLANLABS-2012S1021547

PATIENT
  Age: 61 Year
  Sex: Female

DRUGS (1)
  1. QUETIAPINE [Suspect]
     Indication: PRODUCT USED FOR UNKNOWN INDICATION
     Route: 048
     Dates: start: 20110822, end: 20120821

REACTIONS (2)
  - Hyponatraemia [Recovering/Resolving]
  - Sopor [Recovering/Resolving]
